FAERS Safety Report 9583446 (Version 2)
Quarter: 2013Q4

REPORT INFORMATION
  Report Type: Spontaneous
  Country: US (occurrence: US)
  Receive Date: 20131002
  Receipt Date: 20131002
  Transmission Date: 20140711
  Serious: No
  Sender: FDA-Public Use
  Company Number: US-AMGEN-USASP2013041484

PATIENT
  Age: 59 Year
  Sex: Female
  Weight: 72.56 kg

DRUGS (7)
  1. ENBREL [Suspect]
     Indication: PRODUCT USED FOR UNKNOWN INDICATION
     Dosage: 50 MG, QWK
     Route: 058
     Dates: start: 20130506, end: 20130610
  2. CALTRATE                           /07357001/ [Concomitant]
     Dosage: 600 UNK, UNK
  3. PATADAY [Concomitant]
     Dosage: 0.2 %, UNK
  4. TEGRETOL [Concomitant]
     Dosage: 200 MG, UNK
  5. FLURBIPROFEN [Concomitant]
     Dosage: 100 MG, UNK
  6. DICLOFENAC [Concomitant]
     Dosage: 100 MG, ER
  7. XOPENEX HFA [Concomitant]
     Dosage: AER

REACTIONS (5)
  - Psoriatic arthropathy [Unknown]
  - Local swelling [Unknown]
  - Rash [Unknown]
  - Urticaria [Recovered/Resolved]
  - Psoriasis [Unknown]
